FAERS Safety Report 9484988 (Version 1)
Quarter: 2013Q3

REPORT INFORMATION
  Report Type: Spontaneous
  Country: US (occurrence: US)
  Receive Date: 20130828
  Receipt Date: 20130828
  Transmission Date: 20140515
  Serious: No
  Sender: FDA-Public Use
  Company Number: US-B.I. PHARMACEUTICALS,INC./RIDGEFIELD-2013-BI-26131BP

PATIENT
  Sex: Female

DRUGS (7)
  1. PRADAXA [Suspect]
     Indication: ATRIAL FIBRILLATION
     Dosage: 300 MG
     Route: 048
     Dates: start: 201301
  2. FUROSEMIDE [Concomitant]
     Dosage: 20 MG
     Route: 048
  3. CRESTOR [Concomitant]
     Dosage: 20 MG
     Route: 048
  4. LEVOTHYROXINE [Concomitant]
     Route: 048
  5. ENALAPRIL/HCTZ [Concomitant]
     Route: 048
  6. METOPROLOL [Concomitant]
     Dosage: 20 MG
     Route: 048
  7. ASPIRIN [Concomitant]
     Dosage: 81 MG
     Route: 048

REACTIONS (5)
  - Dyspepsia [Not Recovered/Not Resolved]
  - Insomnia [Not Recovered/Not Resolved]
  - Rash [Not Recovered/Not Resolved]
  - Local swelling [Not Recovered/Not Resolved]
  - Muscle spasms [Recovered/Resolved]
